FAERS Safety Report 7244175-8 (Version None)
Quarter: 2011Q1

REPORT INFORMATION
  Report Type: 
  Country: None (occurrence: None)
  Receive Date: 20110125
  Receipt Date: 20101123
  Transmission Date: 20110831
  Serious: Yes (Hospitalization, Other)
  Sender: FDA-Public Use
  Company Number: US-BAYER-201030051NA

PATIENT
  Sex: Female
  Weight: 76 kg

DRUGS (4)
  1. YAZ [Suspect]
     Indication: PRODUCT USED FOR UNKNOWN INDICATION
     Route: 048
     Dates: start: 20040601, end: 20041101
  2. YASMIN [Suspect]
     Indication: MENSTRUAL DISORDER
     Route: 048
     Dates: start: 20040601, end: 20041101
  3. KLONOPIN [Concomitant]
  4. ZOCOR [Concomitant]
     Indication: BLOOD CHOLESTEROL INCREASED
     Dosage: UNK
     Dates: start: 20040101

REACTIONS (6)
  - SENSORY LOSS [None]
  - HEADACHE [None]
  - GAIT DISTURBANCE [None]
  - DYSARTHRIA [None]
  - LACUNAR INFARCTION [None]
  - HEMIPARESIS [None]
